FAERS Safety Report 7910011-7 (Version None)
Quarter: 2011Q4

REPORT INFORMATION
  Report Type: 
  Country: None (occurrence: None)
  Receive Date: 20111111
  Receipt Date: 20111109
  Transmission Date: 20120403
  Serious: Yes (Death)
  Sender: FDA-Public Use
  Company Number: US-CELGENEUS-163-21880-11111279

PATIENT
  Sex: Female

DRUGS (8)
  1. REVLIMID [Suspect]
     Dosage: 10 MILLIGRAM
     Route: 048
     Dates: start: 20091201
  2. PRILOSEC [Concomitant]
     Dosage: 20 MILLIGRAM
     Route: 048
  3. ZOMETA [Concomitant]
     Dosage: 4MG/5ML
     Route: 041
  4. COUMADIN [Concomitant]
     Dosage: 5 MILLIGRAM
     Route: 048
  5. HYDROCHLOROT [Concomitant]
     Dosage: 25 MILLIGRAM
     Route: 048
  6. TRAMADOL HCL [Concomitant]
     Dosage: 50 MILLIGRAM
     Route: 048
  7. REVLIMID [Suspect]
     Indication: MULTIPLE MYELOMA
     Dosage: 15 MILLIGRAM
     Route: 048
     Dates: start: 20090211, end: 20090101
  8. POTASSIUM CHLORIDE [Concomitant]
     Dosage: 20 MILLIEQUIVALENTS
     Route: 048

REACTIONS (1)
  - DEATH [None]
